FAERS Safety Report 9792535 (Version 3)
Quarter: 2014Q1

REPORT INFORMATION
  Report Type: Spontaneous
  Country: JP (occurrence: JP)
  Receive Date: 20140102
  Receipt Date: 20140122
  Transmission Date: 20141002
  Serious: Yes (Life-Threatening, Hospitalization, Other)
  Sender: FDA-Public Use
  Company Number: JP-PFIZER INC-2013316566

PATIENT
  Age: 50 Year
  Sex: Male
  Weight: 64.4 kg

DRUGS (19)
  1. INLYTA [Suspect]
     Indication: RENAL CELL CARCINOMA
     Dosage: 10 MG, DAILY
     Route: 048
     Dates: start: 20121113, end: 20131107
  2. INLYTA [Suspect]
     Dosage: 6 MG, 1X/DAY
  3. ZOMETA [Suspect]
     Indication: METASTASES TO BONE
     Dosage: 4 MG, 1X/DAY
     Route: 042
     Dates: start: 20120906, end: 20130307
  4. THYRADIN S [Concomitant]
     Indication: HYPOTHYROIDISM
     Dosage: 50 UG, 1X/DAY
     Route: 048
     Dates: start: 20121119
  5. MIYA BM [Concomitant]
     Indication: ENTEROCOLITIS
     Dosage: 1 G, 3X/DAY
     Route: 048
     Dates: start: 20110302
  6. OMEPRAL [Concomitant]
     Indication: GASTRIC ULCER
     Dosage: 20 MG, 1X/DAY
     Route: 048
     Dates: start: 20120104
  7. MYSLEE [Concomitant]
     Indication: INSOMNIA
     Dosage: 10 MG, 1X/DAY
     Route: 048
     Dates: start: 20120124
  8. EXFORGE [Concomitant]
     Indication: HYPERTENSION
     Dosage: UNK
     Route: 048
     Dates: start: 20130207
  9. CARDENALIN [Concomitant]
     Indication: HYPERTENSION
     Dosage: 1 MG, 2X/DAY
     Route: 048
     Dates: start: 20130221
  10. MYONAL [Concomitant]
     Indication: MUSCULOSKELETAL STIFFNESS
     Dosage: 50 MG, 3X/DAY
     Route: 048
     Dates: start: 20130221
  11. MYONAL [Concomitant]
     Indication: HEADACHE
  12. ASPARA K [Concomitant]
     Indication: HYPOKALAEMIA
     Dosage: 600 MG, 3X/DAY
     Route: 048
     Dates: start: 20130221
  13. FEBURIC [Concomitant]
     Indication: HYPERURICAEMIA
     Dosage: 10 MG, 1X/DAY
     Route: 048
     Dates: start: 20130307
  14. PYDOXAL [Concomitant]
     Indication: STOMATITIS
     Dosage: 20 MG, 3X/DAY
     Route: 048
     Dates: start: 20110208, end: 20130206
  15. HIBON [Concomitant]
     Indication: STOMATITIS
     Dosage: 20 MG, 3X/DAY
     Route: 048
     Dates: start: 20110208, end: 20130206
  16. AMLODIPINE OD [Concomitant]
     Indication: HYPERTENSION
     Dosage: 5 MG, 1X/DAY
     Route: 048
     Dates: start: 20110330, end: 20130206
  17. FAMOSTAGINE D [Concomitant]
     Indication: GASTRIC ULCER
     Dosage: 10 MG, 2X/DAY
     Route: 048
     Dates: start: 20110310, end: 20120103
  18. ALLELOCK [Concomitant]
     Indication: HYPERSENSITIVITY
     Dosage: 5 MG, 2X/DAY
     Route: 048
     Dates: start: 20111220, end: 20130109
  19. RILMAZAFONE HYDROCHLORIDE [Concomitant]
     Indication: INSOMNIA
     Dosage: 2 MG, 1X/DAY
     Route: 048
     Dates: start: 20120118, end: 20120123

REACTIONS (3)
  - Appendicitis perforated [Recovering/Resolving]
  - Enterocolitis [Recovering/Resolving]
  - Osteonecrosis of jaw [Not Recovered/Not Resolved]
